FAERS Safety Report 9713323 (Version 2)
Quarter: 2013Q4

REPORT INFORMATION
  Report Type: Spontaneous
  Country: GB (occurrence: GB)
  Receive Date: 20131126
  Receipt Date: 20131126
  Transmission Date: 20140711
  Serious: Yes (Hospitalization)
  Sender: FDA-Public Use
  Company Number: GB-IPSEN BIOPHARMACEUTICALS, INC.-2013-2820

PATIENT
  Age: 55 Year
  Sex: Female

DRUGS (1)
  1. SOMATULINE AUTOGEL [Suspect]
     Indication: CARCINOID TUMOUR
     Dosage: 60 MG
     Route: 058
     Dates: start: 20130701

REACTIONS (4)
  - Heart rate decreased [Recovered/Resolved]
  - Malaise [Recovered/Resolved]
  - Abdominal pain [Unknown]
  - Blood bilirubin increased [Unknown]
